FAERS Safety Report 10243147 (Version 1)
Quarter: 2014Q2

REPORT INFORMATION
  Report Type: Spontaneous
  Country: US (occurrence: None)
  Receive Date: 20140616
  Receipt Date: 20140616
  Transmission Date: 20141212
  Serious: Yes (Hospitalization)
  Sender: FDA-Public Use
  Company Number: UNT-2014-001090

PATIENT
  Age: 78 Year
  Sex: Male
  Weight: 116.5 kg

DRUGS (3)
  1. TYVASO [Suspect]
     Indication: PULMONARY ARTERIAL HYPERTENSION
     Route: 055
     Dates: start: 20130222
  2. ADCIRCA (TADALAFIL) UNKNOWN [Concomitant]
  3. XARELTO (RIVAROXABAN) UNKNOWN [Concomitant]

REACTIONS (2)
  - Syncope [None]
  - Fall [None]
